FAERS Safety Report 7379745-X (Version None)
Quarter: 2011Q1

REPORT INFORMATION
  Report Type: 
  Country: None (occurrence: None)
  Receive Date: 20110318
  Receipt Date: 20110303
  Transmission Date: 20110831
  Serious: Yes (Other)
  Sender: FDA-Public Use
  Company Number: AUR-APL-2011-00868

PATIENT
  Sex: Female

DRUGS (3)
  1. SIMVASTATIN [Suspect]
     Dosage: 10MG-DAILY-ORAL
     Route: 048
     Dates: start: 20110112, end: 20110303
  2. MULTI-VITAMIN [Concomitant]
  3. FISH OIL [Concomitant]

REACTIONS (4)
  - PRODUCT SUBSTITUTION ISSUE [None]
  - ABDOMINAL DISTENSION [None]
  - DIARRHOEA [None]
  - COELIAC DISEASE [None]
